FAERS Safety Report 6723895-5 (Version None)
Quarter: 2010Q2

REPORT INFORMATION
  Report Type: 
  Country: None (occurrence: None)
  Receive Date: 20100513
  Receipt Date: 20100505
  Transmission Date: 20101027
  Serious: Yes (Other)
  Sender: FDA-Public Use
  Company Number: GB-WATSON-2010-06324

PATIENT

DRUGS (2)
  1. RAMIPRIL [Suspect]
     Indication: HYPERTENSION
     Dosage: 2 1/2 MG, UNK
     Route: 048
     Dates: start: 20100115, end: 20100211
  2. ALLOPURINOL [Concomitant]
     Indication: GOUT
     Dosage: 100 MG, UNK
     Route: 048
     Dates: start: 20030926

REACTIONS (3)
  - DYSPNOEA [None]
  - LETHARGY [None]
  - PALPITATIONS [None]
